FAERS Safety Report 11824217 (Version 1)
Quarter: 2015Q4

REPORT INFORMATION
  Report Type: Spontaneous
  Country: IT (occurrence: IT)
  Receive Date: 20151210
  Receipt Date: 20151210
  Transmission Date: 20160305
  Serious: Yes (Other)
  Sender: FDA-Public Use
  Company Number: IT-TEVA-615343ACC

PATIENT
  Age: 61 Year
  Sex: Female
  Weight: 70 kg

DRUGS (3)
  1. FLUOROURACILE TEVA - 500 MG/10 ML SOLUZIONE PER INFUSIONE [Suspect]
     Active Substance: FLUOROURACIL
     Indication: BREAST CANCER
     Dosage: 1050 MG CYCLICAL
     Route: 042
     Dates: start: 20151002, end: 20151120
  2. ENDOXAN BAXTER - 50 MG COMPRESSE RIVESTITE - BAXTER S.P.A. [Suspect]
     Active Substance: CYCLOPHOSPHAMIDE
     Indication: BREAST CANCER
     Dosage: 175 MILLIGRAM DAILY; 175 MG DAILY
     Route: 048
     Dates: start: 20151002, end: 20151120
  3. METOTRESSATO TEVA - 25 MG/ML SOLUZIONE INIETTABILE - TEVA ITALIA S.R.L [Suspect]
     Active Substance: METHOTREXATE SODIUM
     Indication: BREAST CANCER
     Dosage: 70 MG CYCLICAL
     Route: 042
     Dates: start: 20151002, end: 20151120

REACTIONS (3)
  - Asthenia [Not Recovered/Not Resolved]
  - Leukopenia [Not Recovered/Not Resolved]
  - Thrombocytopenia [Not Recovered/Not Resolved]

NARRATIVE: CASE EVENT DATE: 20151113
